FAERS Safety Report 8483894-2 (Version None)
Quarter: 2012Q2

REPORT INFORMATION
  Report Type: 
  Country: None (occurrence: None)
  Receive Date: 20120627
  Receipt Date: 20120627
  Transmission Date: 20120825
  Serious: Yes (Other)
  Sender: FDA-Public Use
  Company Number: None

PATIENT
  Age: 34 Year
  Sex: Female
  Weight: 106.1417 kg

DRUGS (1)
  1. OFIRMEV [Suspect]
     Indication: PAIN
     Dosage: 1000MG Q8 HOURS X 3 DOSES IV DRIP
     Route: 041
     Dates: start: 20120623, end: 20120624

REACTIONS (3)
  - HYPERACUSIS [None]
  - FEELING ABNORMAL [None]
  - DIZZINESS [None]
